FAERS Safety Report 5212371-7 (Version None)
Quarter: 2006Q4

REPORT INFORMATION
  Report Type: 
  Country: None (occurrence: None)
  Receive Date: 20061130
  Receipt Date: 20060705
  Transmission Date: 20070319
  Serious: Yes (Other)
  Sender: FDA-Public Use
  Company Number: WAES 0607USA00823

PATIENT
  Age: 60 Year
  Sex: Female

DRUGS (6)
  1. FOSAMAX [Suspect]
     Dosage: PO
     Route: 048
     Dates: start: 19981130, end: 20050101
  2. ACCUPRIL [Concomitant]
  3. CLARITIN [Concomitant]
  4. GLUCOPHAGE [Concomitant]
  5. LASIX [Concomitant]
  6. GLIPIZIDE [Concomitant]

REACTIONS (7)
  - JAW CYST [None]
  - JAW DISORDER [None]
  - LOOSE TOOTH [None]
  - OSTEONECROSIS [None]
  - OVERDOSE [None]
  - PAIN [None]
  - SWELLING FACE [None]
